FAERS Safety Report 6649742-8 (Version None)
Quarter: 2010Q1

REPORT INFORMATION
  Report Type: 
  Country: None (occurrence: None)
  Receive Date: 20100324
  Receipt Date: 20100324
  Transmission Date: 20100710
  Serious: Yes (Hospitalization)
  Sender: FDA-Public Use
  Company Number: None

PATIENT
  Age: 55 Year
  Sex: Male
  Weight: 97.3 kg

DRUGS (2)
  1. DIVALPROEX SODIUM [Suspect]
     Indication: SCHIZOAFFECTIVE DISORDER
     Dosage: 1500 MG BID PO
     Route: 048
     Dates: start: 20090806, end: 20090923
  2. QUETIAPINE [Suspect]
     Indication: ANXIETY
     Dosage: PO
     Route: 048
     Dates: start: 20090806, end: 20090923

REACTIONS (2)
  - AMMONIA INCREASED [None]
  - DELIRIUM [None]
